FAERS Safety Report 6707849-0 (Version None)
Quarter: 2010Q2

REPORT INFORMATION
  Report Type: 
  Country: None (occurrence: None)
  Receive Date: 20100503
  Receipt Date: 20090407
  Transmission Date: 20101027
  Serious: No
  Sender: FDA-Public Use
  Company Number: US-ASTRAZENECA-2009UW08740

PATIENT
  Age: 73 Year
  Sex: Female
  Weight: 56.7 kg

DRUGS (6)
  1. NEXIUM [Suspect]
     Indication: GASTROOESOPHAGEAL REFLUX DISEASE
     Route: 048
     Dates: start: 20040407
  2. ZEGERID [Concomitant]
  3. THYROID TAB [Concomitant]
  4. MULTI-VITAMIN [Concomitant]
  5. HERBAL SUPPLEMENT [Concomitant]
  6. CALCIUM SUPPLEMENTS [Concomitant]

REACTIONS (2)
  - EROSIVE OESOPHAGITIS [None]
  - GASTROOESOPHAGEAL REFLUX DISEASE [None]
